FAERS Safety Report 4706699-4 (Version None)
Quarter: 2005Q2

REPORT INFORMATION
  Report Type: 
  Country: None (occurrence: None)
  Receive Date: 20050629
  Receipt Date: 20050329
  Transmission Date: 20051028
  Serious: No
  Sender: FDA-Public Use
  Company Number: 05P-163-0295395-00

PATIENT
  Age: 47 Year
  Sex: Female
  Weight: 80.9671 kg

DRUGS (9)
  1. HUMIRA [Suspect]
     Indication: CROHN'S DISEASE
     Dosage: 40 MG, 1 IN 2 WK, SUBCUTANEOUS
     Route: 058
     Dates: start: 20050214
  2. PREDNISONE [Concomitant]
  3. CLONAZEPAM [Concomitant]
  4. CITALOPRAM [Concomitant]
  5. LANSOPRAZOLE [Concomitant]
  6. ONDANSETRON HYDROCHLORIDE [Concomitant]
  7. FENTANYL [Concomitant]
  8. OXYCOCET [Concomitant]
  9. MULTI-VITAMINS [Concomitant]

REACTIONS (5)
  - CHEST PAIN [None]
  - DYSPNOEA [None]
  - NAUSEA [None]
  - PAIN [None]
  - PARAESTHESIA [None]
